FAERS Safety Report 4329078-0 (Version None)
Quarter: 2004Q1

REPORT INFORMATION
  Report Type: 
  Country: None (occurrence: None)
  Receive Date: 20040329
  Receipt Date: 20031217
  Transmission Date: 20041129
  Serious: No
  Sender: FDA-Public Use
  Company Number: 03P-163-0244942-00

PATIENT
  Age: 57 Year
  Sex: Female
  Weight: 56.6996 kg

DRUGS (4)
  1. HUMIRA [Suspect]
     Indication: RHEUMATOID ARTHRITIS
     Dosage: SEE IMAGE           SUBCUTANEOUS
     Route: 058
     Dates: start: 20030301, end: 20031215
  2. HUMIRA [Suspect]
     Indication: RHEUMATOID ARTHRITIS
     Dosage: SEE IMAGE           SUBCUTANEOUS
     Route: 058
     Dates: start: 20031216
  3. BUCINDOLOL HYDROCHLORIDE [Concomitant]
  4. THYROID TAB [Concomitant]

REACTIONS (2)
  - INJECTION SITE BURNING [None]
  - RHEUMATOID ARTHRITIS [None]
